FAERS Safety Report 8849748 (Version 3)
Quarter: 2013Q1

REPORT INFORMATION
  Report Type: Report from Study
  Country: US (occurrence: US)
  Receive Date: 20121019
  Receipt Date: 20130103
  Transmission Date: 20140127
  Serious: No
  Sender: FDA-Public Use
  Company Number: US-VERTEX PHARMACEUTICAL INC.-2012-022862

PATIENT
  Age: 57 Year
  Sex: Male
  Weight: 72 kg

DRUGS (3)
  1. VX-950 (TELAPREVIR) [Suspect]
     Indication: HEPATITIS C
     Dosage: 750 MG, TID
     Route: 048
     Dates: start: 20120702
  2. PEGASYS [Suspect]
     Indication: HEPATITIS C
     Dosage: 180 ?G, WEEKLY
     Route: 058
     Dates: start: 20120702
  3. RIBAVIRIN [Suspect]
     Indication: HEPATITIS C
     Dosage: 400MG AM, 600MG PM
     Route: 048
     Dates: start: 20120702

REACTIONS (13)
  - Headache [Unknown]
  - Anxiety [Unknown]
  - Dizziness [Unknown]
  - Tremor [Unknown]
  - Epistaxis [Unknown]
  - Abdominal pain [Unknown]
  - Cough [Unknown]
  - Decreased appetite [Unknown]
  - Insomnia [Unknown]
  - Hyperhidrosis [Unknown]
  - Rash pruritic [Unknown]
  - Pruritus [Unknown]
  - Nausea [Unknown]
